FAERS Safety Report 10006091 (Version 1)
Quarter: 2014Q1

REPORT INFORMATION
  Report Type: Spontaneous
  Country: US (occurrence: US)
  Receive Date: 20140313
  Receipt Date: 20140313
  Transmission Date: 20141002
  Serious: No
  Sender: FDA-Public Use
  Company Number: US-009507513-1403USA003945

PATIENT
  Sex: Female

DRUGS (1)
  1. IMPLANON [Suspect]
     Indication: CONTRACEPTION
     Dosage: AN IMPLANON ROD, IN HER ARM
     Route: 059
     Dates: start: 201203

REACTIONS (2)
  - Device deployment issue [Unknown]
  - Pain [Unknown]
